FAERS Safety Report 15666065 (Version 5)
Quarter: 2020Q1

REPORT INFORMATION
  Report Type: Report from Study
  Country: FI (occurrence: FI)
  Receive Date: 20181128
  Receipt Date: 20200207
  Transmission Date: 20200409
  Serious: Yes (Hospitalization, Other)
  Sender: FDA-Public Use
  Company Number: FI-MYLANLABS-2018M1087714

PATIENT
  Age: 37 Year
  Sex: Male

DRUGS (41)
  1. ABILIFY [Concomitant]
     Active Substance: ARIPIPRAZOLE
     Dosage: 60 MILLIGRAM, QD
     Dates: start: 20171019, end: 20171116
  2. VENLAFAXINE [Concomitant]
     Active Substance: VENLAFAXINE HYDROCHLORIDE
     Indication: PRODUCT USED FOR UNKNOWN INDICATION
     Dosage: 75 MILLIGRAM, QD
     Dates: start: 201303
  3. ATARAX [Concomitant]
     Active Substance: HYDROXYZINE HYDROCHLORIDE
     Indication: INSOMNIA
     Dosage: UNK, PRN
     Dates: start: 201409
  4. ATARAX [Concomitant]
     Active Substance: HYDROXYZINE HYDROCHLORIDE
     Dosage: 25 MILLIGRAM, QD
     Dates: start: 20170720, end: 20170728
  5. KETIPINOR [Concomitant]
     Active Substance: QUETIAPINE FUMARATE
     Indication: ANXIETY
     Dosage: 50 MILLIGRAM, PM (50 MG, CAN BE INCREASED TO 100 MG)
     Dates: start: 201410
  6. LAMICTAL [Concomitant]
     Active Substance: LAMOTRIGINE
     Indication: PRODUCT USED FOR UNKNOWN INDICATION
     Dosage: UNK
  7. MIRTAZAPINE. [Concomitant]
     Active Substance: MIRTAZAPINE
     Indication: SLEEP DISORDER
     Dosage: 15 MILLIGRAM
     Dates: start: 20170915, end: 2017
  8. ABILIFY [Concomitant]
     Active Substance: ARIPIPRAZOLE
     Dosage: 30 MILLIGRAM, QD
     Dates: start: 20170906, end: 20170915
  9. ABILIFY [Concomitant]
     Active Substance: ARIPIPRAZOLE
     Dosage: 30 MILLIGRAM, QD
     Dates: start: 20171116, end: 20180515
  10. OXAMIN [Concomitant]
     Active Substance: OXAZEPAM
     Dosage: UNK UNK, QD
     Dates: start: 201310
  11. ATARAX [Concomitant]
     Active Substance: HYDROXYZINE HYDROCHLORIDE
     Dosage: 100 MILLIGRAM, QD
     Dates: start: 20170728, end: 20170902
  12. KETIPINOR [Concomitant]
     Active Substance: QUETIAPINE FUMARATE
     Dosage: UNK, TID (ADDITIONALLY, 25 MG)
     Dates: start: 201410
  13. ZYPREXA [Concomitant]
     Active Substance: OLANZAPINE
     Dosage: 7.5 MILLIGRAM, PM
     Dates: start: 20190201, end: 20190205
  14. STILNOCT [Concomitant]
     Active Substance: ZOLPIDEM TARTRATE
     Indication: PRODUCT USED FOR UNKNOWN INDICATION
     Dosage: 10 MILLIGRAM
  15. LEPONEX [Suspect]
     Active Substance: CLOZAPINE
     Dosage: 550 MILLIGRAM, QD
     Route: 065
  16. OXAMIN [Concomitant]
     Active Substance: OXAZEPAM
     Indication: ANXIETY
     Dosage: 15 MILLIGRAM, PRN
     Dates: start: 2012
  17. LAMICTAL [Concomitant]
     Active Substance: LAMOTRIGINE
     Dosage: 100 MILLIGRAM
     Dates: start: 201609, end: 2016
  18. MELATONIN [Concomitant]
     Active Substance: MELATONIN
     Dosage: UNK, PRN (5 MG UP TO 10 MG)
     Dates: start: 20170902, end: 20170902
  19. LEVOZIN                            /00038602/ [Concomitant]
     Active Substance: LEVOMEPROMAZINE MALEATE
     Dosage: 50 MILLIGRAM (DECREASED FROM 100 MG TO 50 MG)
     Dates: start: 20171114, end: 20171204
  20. LITO [Concomitant]
     Active Substance: LITHIUM CARBONATE
     Indication: PRODUCT USED FOR UNKNOWN INDICATION
     Dosage: 300 MILLIGRAM, QD
     Dates: start: 20170619
  21. ABILIFY [Concomitant]
     Active Substance: ARIPIPRAZOLE
     Indication: PRODUCT USED FOR UNKNOWN INDICATION
     Dosage: 30 MILLIGRAM, QD
     Dates: start: 2012
  22. ABILIFY [Concomitant]
     Active Substance: ARIPIPRAZOLE
     Dosage: 30 MILLIGRAM, QD
     Dates: start: 2018
  23. TENOX                              /00393701/ [Concomitant]
     Active Substance: TEMAZEPAM
     Indication: PRODUCT USED FOR UNKNOWN INDICATION
     Dosage: UNK
     Dates: start: 20170724
  24. LITO [Concomitant]
     Active Substance: LITHIUM CARBONATE
     Dosage: 600 MILLIGRAM, QD
     Dates: start: 20170712
  25. LEVOZIN                            /00038602/ [Concomitant]
     Active Substance: LEVOMEPROMAZINE MALEATE
     Indication: PRODUCT USED FOR UNKNOWN INDICATION
     Dosage: 50 MILLIGRAM
     Dates: start: 20170915
  26. ABILIFY MAINTENA [Concomitant]
     Active Substance: ARIPIPRAZOLE
     Indication: PRODUCT USED FOR UNKNOWN INDICATION
     Dosage: UNK, 4XW
     Dates: start: 20180515
  27. ABILIFY [Concomitant]
     Active Substance: ARIPIPRAZOLE
     Dosage: 15 MILLIGRAM, QD
     Dates: start: 20170731
  28. ABILIFY [Concomitant]
     Active Substance: ARIPIPRAZOLE
     Dosage: 45 MILLIGRAM, QD
     Dates: start: 20170915, end: 20171019
  29. ATARAX [Concomitant]
     Active Substance: HYDROXYZINE HYDROCHLORIDE
     Dosage: UNK UNK, QD (25 MG AS NEEDED UP TO 100 MG)
     Dates: start: 20170902
  30. LEVOZIN                            /00038602/ [Concomitant]
     Active Substance: LEVOMEPROMAZINE MALEATE
     Dosage: 100 MILLIGRAM
     Dates: start: 2017
  31. LITO [Concomitant]
     Active Substance: LITHIUM CARBONATE
     Dosage: 600 MILLIGRAM, QD
     Dates: start: 20170731, end: 20170915
  32. LEPONEX [Suspect]
     Active Substance: CLOZAPINE
     Indication: PRODUCT USED FOR UNKNOWN INDICATION
     Dosage: UNK
     Route: 065
  33. STELLA                             /00914902/ [Concomitant]
     Indication: PRODUCT USED FOR UNKNOWN INDICATION
     Dosage: UNK, PM
     Dates: start: 2012
  34. ATARAX [Concomitant]
     Active Substance: HYDROXYZINE HYDROCHLORIDE
     Dosage: UNK
  35. SUBOXONE [Concomitant]
     Active Substance: BUPRENORPHINE HYDROCHLORIDE\NALOXONE HYDROCHLORIDE
     Indication: PRODUCT USED FOR UNKNOWN INDICATION
     Dosage: 2 DOSAGE FORM, QD
  36. ZYPREXA [Concomitant]
     Active Substance: OLANZAPINE
     Indication: PRODUCT USED FOR UNKNOWN INDICATION
     Dosage: 10 MILLIGRAM, PM
     Dates: start: 20170724, end: 20170728
  37. MELATONIN [Concomitant]
     Active Substance: MELATONIN
     Indication: PRODUCT USED FOR UNKNOWN INDICATION
     Dosage: UNK, PRN
     Dates: start: 20170724, end: 20170902
  38. TENOX                              /00393701/ [Concomitant]
     Active Substance: TEMAZEPAM
     Dosage: UNK (10-20MG TEMPORARILY)
     Dates: start: 20190205
  39. LEVOZIN                            /00038602/ [Concomitant]
     Active Substance: LEVOMEPROMAZINE MALEATE
     Dosage: UNK (AS NEEDED,INFREQUENTLY: 25 MG APPROXIMATELY 1-2 TIMES A WEEK, MAXIMUM 25 MG PER DAY)
  40. NIACIN. [Concomitant]
     Active Substance: NIACIN
     Indication: PRODUCT USED FOR UNKNOWN INDICATION
     Dosage: 1500 MILLIGRAM
     Dates: start: 201712
  41. INFLUENZA VACCINE [Concomitant]
     Active Substance: INFLUENZA VIRUS VACCINE
     Indication: PRODUCT USED FOR UNKNOWN INDICATION
     Dosage: UNK
     Dates: start: 20181220, end: 20181220

REACTIONS (19)
  - Initial insomnia [Unknown]
  - Alcohol use [Unknown]
  - Antipsychotic drug level above therapeutic [Recovered/Resolved]
  - White blood cell count increased [Recovered/Resolved]
  - Endocarditis [Not Recovered/Not Resolved]
  - Leukopenia [Not Recovered/Not Resolved]
  - Intentional product misuse [Unknown]
  - Basophil count increased [Unknown]
  - Neutrophil count increased [Recovered/Resolved]
  - Blood count abnormal [Unknown]
  - Neutropenia [Not Recovered/Not Resolved]
  - Hepatic enzyme increased [Not Recovered/Not Resolved]
  - Eosinophil count increased [Unknown]
  - Infection [Unknown]
  - Hallucination, auditory [Unknown]
  - Haemoglobin decreased [Unknown]
  - Sepsis [Unknown]
  - Anxiety [Unknown]
  - Platelet count decreased [Unknown]

NARRATIVE: CASE EVENT DATE: 2012
